FAERS Safety Report 20869474 (Version 1)
Quarter: 2022Q2

REPORT INFORMATION
  Report Type: Report from Study
  Country: US (occurrence: US)
  Receive Date: 20220524
  Receipt Date: 20220524
  Transmission Date: 20220720
  Serious: Yes (Hospitalization, Other)
  Sender: FDA-Public Use
  Company Number: US-ABBVIE-22K-163-4401677-00

PATIENT
  Age: 81 Year
  Sex: Female

DRUGS (1)
  1. CREON [Suspect]
     Active Substance: PANCRELIPASE AMYLASE\PANCRELIPASE LIPASE\PANCRELIPASE PROTEASE
     Indication: Product used for unknown indication
     Dosage: 2 WITH MEALS, ONE WITH SNACKS
     Route: 048

REACTIONS (9)
  - Cholecystectomy [Unknown]
  - Pancreatic carcinoma [Unknown]
  - Stent placement [Unknown]
  - Endometrial cancer [Unknown]
  - Hospitalisation [Unknown]
  - Multiple allergies [Unknown]
  - Asthenia [Unknown]
  - Scan abnormal [Unknown]
  - Unevaluable event [Unknown]

NARRATIVE: CASE EVENT DATE: 20220201
